FAERS Safety Report 14848800 (Version 1)
Quarter: 2018Q2

REPORT INFORMATION
  Report Type: Spontaneous
  Country: US (occurrence: US)
  Receive Date: 20180419
  Receipt Date: 20180419
  Transmission Date: 20180711
  Serious: No
  Sender: FDA-Public Use
  Company Number: None

PATIENT
  Age: 70 Year
  Sex: Male
  Weight: 76.5 kg

DRUGS (3)
  1. TRIAMCINOLONE ACETONIDE 0.1% CREAM [Suspect]
     Active Substance: TRIAMCINOLONE ACETONIDE
     Indication: HYPERSENSITIVITY
     Route: 061
     Dates: start: 20180412, end: 20180418
  2. ACETAMINOPHIN [Concomitant]
  3. TRIAMCINOLONE ACETONIDE 0.1% CREAM [Suspect]
     Active Substance: TRIAMCINOLONE ACETONIDE
     Indication: PRURITUS
     Route: 061
     Dates: start: 20180412, end: 20180418

REACTIONS (3)
  - Application site dryness [None]
  - Application site reaction [None]
  - Skin wrinkling [None]

NARRATIVE: CASE EVENT DATE: 20180418
